FAERS Safety Report 21212109 (Version 3)
Quarter: 2022Q3

REPORT INFORMATION
  Report Type: Spontaneous
  Country: US (occurrence: US)
  Receive Date: 20220815
  Receipt Date: 20220916
  Transmission Date: 20221026
  Serious: No
  Sender: FDA-Public Use
  Company Number: US-PFIZER INC-202201056633

PATIENT
  Age: 66 Year
  Sex: Female
  Weight: 74.84 kg

DRUGS (13)
  1. PAXLOVID [Suspect]
     Active Substance: NIRMATRELVIR\RITONAVIR
     Indication: COVID-19 treatment
     Dosage: [PF-07321332 300 MG]/[RITONAVIR 100 MG]; 2X/DAY
     Dates: start: 20220807
  2. ALBUTEROL [Concomitant]
     Active Substance: ALBUTEROL
     Indication: Inhalation therapy
     Dosage: 90 UG, AS NEEDED
  3. ALENDRONATE [Concomitant]
     Active Substance: ALENDRONATE SODIUM
     Indication: Bone disorder
     Dosage: 70 MG, WEEKLY (70MG ONCE A WEEK ORALLY)
     Route: 048
  4. AMITRIPTYLINE [Concomitant]
     Active Substance: AMITRIPTYLINE
     Indication: Sleep disorder therapy
     Dosage: 10 MG, 1X/DAY (10MG ONCE AT NIGHT BY MOUTH)
     Route: 048
  5. TRAZODONE [Concomitant]
     Active Substance: TRAZODONE HYDROCHLORIDE
     Indication: Sleep disorder
     Dosage: 150 MG, 1X/DAY (150MG ONCE AT NIGHT BY MOUTH)
     Route: 048
     Dates: start: 2007
  6. ATENOLOL [Concomitant]
     Active Substance: ATENOLOL
     Indication: Tremor
     Dosage: 25 MG, 2X/DAY
     Route: 048
  7. BUDESONIDE\FORMOTEROL [Concomitant]
     Active Substance: BUDESONIDE\FORMOTEROL
     Indication: Asthma
     Dosage: UNK, 2X/DAY (160-4.5MCG/ACTUATION INHALER TAKES 2 PUFFS A DAY TWICE A DAY)
  8. BUPROPION [Concomitant]
     Active Substance: BUPROPION
     Indication: Depression
     Dosage: 200 MG, 2X/DAY
     Route: 048
  9. DICLOFENAC [Concomitant]
     Active Substance: DICLOFENAC
     Indication: Joint injury
     Dosage: UNK (USES AT NIGHT WHEN HER KNEES WAKE HER AT NIGHT. TOPICAL)
     Route: 061
  10. DULOXETINE [Concomitant]
     Active Substance: DULOXETINE
     Indication: Depression
     Dosage: 60 MG, 1X/DAY
     Route: 048
     Dates: start: 2012
  11. NORCO [Concomitant]
     Active Substance: ACETAMINOPHEN\HYDROCODONE BITARTRATE
     Indication: Pain
     Dosage: UNK, AS NEEDED (5-325MG TAKES 1 AS NEEDED)
  12. MELOXICAM [Concomitant]
     Active Substance: MELOXICAM
     Indication: Pain
     Dosage: 7.5 MG, AS NEEDED
     Route: 048
  13. GAMUNEX [Concomitant]
     Active Substance: HUMAN IMMUNOGLOBULIN G
     Indication: Immunoglobulin therapy
     Dosage: UNK (DOSE UNKNOWN IT^S BY IV ONCE A MONTH)

REACTIONS (5)
  - Vomiting [Recovered/Resolved]
  - Malaise [Unknown]
  - Abdominal pain upper [Unknown]
  - Dysgeusia [Unknown]
  - Illness [Unknown]

NARRATIVE: CASE EVENT DATE: 20220810
